FAERS Safety Report 5777884-8 (Version None)
Quarter: 2008Q2

REPORT INFORMATION
  Report Type: 
  Country: None (occurrence: None)
  Receive Date: 20080618
  Receipt Date: 20080611
  Transmission Date: 20081010
  Serious: Yes (Other)
  Sender: FDA-Public Use
  Company Number: US-GILEAD-2008-0016851

PATIENT
  Sex: Male

DRUGS (7)
  1. EMTRIVA [Suspect]
  2. TRUVADA [Suspect]
  3. VIREAD [Suspect]
  4. KALETRA [Concomitant]
  5. PREZISTA [Concomitant]
  6. ISENTRESS [Concomitant]
  7. INTELLENCE [Concomitant]
     Indication: HIV INFECTION

REACTIONS (1)
  - BLOOD CREATININE INCREASED [None]
